FAERS Safety Report 7156370-7 (Version None)
Quarter: 2010Q4

REPORT INFORMATION
  Report Type: 
  Country: None (occurrence: None)
  Receive Date: 20101214
  Receipt Date: 20101207
  Transmission Date: 20110411
  Serious: Yes (Disabling, Other)
  Sender: FDA-Public Use
  Company Number: BR-ROCHE-475136

PATIENT
  Sex: Female
  Weight: 46 kg

DRUGS (9)
  1. RIVOTRIL [Suspect]
     Indication: ANXIETY
     Dosage: INDICATION: HEADACHE DUE TO CYSTICERCOSIS; DOSE: 0.5 TAB/DAY
     Route: 048
     Dates: start: 19940501, end: 20081201
  2. RIVOTRIL [Suspect]
     Dosage: DOSE: 2.5 MG/ML
     Route: 048
     Dates: start: 20081201, end: 20091005
  3. RIVOTRIL [Suspect]
     Dosage: DOSE: 2.5 MG/ML, DISCONTINUED FOR 5 DAYS
     Route: 048
     Dates: start: 20091009, end: 20091101
  4. RIVOTRIL [Suspect]
     Route: 048
  5. RIVOTRIL [Suspect]
     Route: 048
  6. DAFORIN [Suspect]
     Indication: DIZZINESS
     Route: 048
     Dates: start: 20090926, end: 20091010
  7. CARBAMAZEPINE [Suspect]
     Indication: DIZZINESS
     Route: 048
     Dates: start: 20081201, end: 20081201
  8. EQUILID [Suspect]
     Indication: DIZZINESS
     Dosage: INDICATIONS: ANXIETY, NERVOUSISM AND LOSS OF MEMORY.
     Route: 048
     Dates: start: 20090101, end: 20090801
  9. VENLAFAXINE [Suspect]
     Indication: DIZZINESS
     Route: 048
     Dates: start: 20091017, end: 20091201

REACTIONS (36)
  - AMNESIA [None]
  - ANXIETY [None]
  - BLOOD CHOLESTEROL INCREASED [None]
  - BLOOD TRIGLYCERIDES INCREASED [None]
  - BONE PAIN [None]
  - CARPAL TUNNEL SYNDROME [None]
  - CONVULSION [None]
  - DECREASED APPETITE [None]
  - DEPENDENCE [None]
  - DEPRESSED MOOD [None]
  - DIARRHOEA [None]
  - DIZZINESS [None]
  - DRUG INEFFECTIVE [None]
  - FACIAL PAIN [None]
  - FEELING ABNORMAL [None]
  - FEELING COLD [None]
  - HEADACHE [None]
  - HEART RATE INCREASED [None]
  - HYPERHIDROSIS [None]
  - HYPOKINESIA [None]
  - INNER EAR DISORDER [None]
  - INSOMNIA [None]
  - INTERVERTEBRAL DISC PROTRUSION [None]
  - MALAISE [None]
  - MUSCLE ATROPHY [None]
  - NAUSEA [None]
  - NECK PAIN [None]
  - NERVOUSNESS [None]
  - PARAESTHESIA [None]
  - RHINITIS ALLERGIC [None]
  - SOMNOLENCE [None]
  - STRESS [None]
  - SYNCOPE [None]
  - TACHYCARDIA [None]
  - TREMOR [None]
  - WEIGHT DECREASED [None]
